FAERS Safety Report 5692180-5 (Version None)
Quarter: 2008Q2

REPORT INFORMATION
  Report Type: 
  Country: None (occurrence: None)
  Receive Date: 20080402
  Receipt Date: 20080331
  Transmission Date: 20081010
  Serious: Yes (Hospitalization)
  Sender: FDA-Public Use
  Company Number: B0506920A

PATIENT
  Age: 72 Year
  Sex: Male
  Weight: 54 kg

DRUGS (18)
  1. REQUIP [Suspect]
     Indication: PARKINSON'S DISEASE
     Dosage: 2MG PER DAY
     Route: 048
     Dates: start: 20070807, end: 20070813
  2. REQUIP [Suspect]
     Dosage: 4MG PER DAY
     Route: 048
     Dates: start: 20070814, end: 20070820
  3. REQUIP [Suspect]
     Dosage: 6MG PER DAY
     Route: 048
     Dates: start: 20070821, end: 20070827
  4. REQUIP [Suspect]
     Dosage: 8MG PER DAY
     Route: 048
     Dates: start: 20070828, end: 20070903
  5. REQUIP [Suspect]
     Dosage: 10MG PER DAY
     Route: 048
     Dates: start: 20070904, end: 20071001
  6. REQUIP [Suspect]
     Dosage: 12MG PER DAY
     Route: 048
     Dates: start: 20071002, end: 20080205
  7. EURODIN [Concomitant]
     Indication: PROPHYLAXIS
     Route: 048
  8. DIGOXIN [Concomitant]
     Indication: ATRIAL FIBRILLATION
     Route: 048
  9. WARFARIN SODIUM [Concomitant]
     Indication: ATRIAL FIBRILLATION
     Route: 048
  10. ALMARL [Concomitant]
     Indication: ATRIAL FIBRILLATION
     Route: 048
  11. TAGAMET [Concomitant]
     Indication: GASTRITIS PROPHYLAXIS
     Route: 048
  12. GLORIAMIN [Concomitant]
     Indication: GASTRITIS PROPHYLAXIS
     Route: 048
  13. GLYSENNID [Concomitant]
     Indication: CONSTIPATION
     Route: 048
     Dates: start: 20070903
  14. BUFEXAMAC [Concomitant]
     Indication: DERMATITIS
     Route: 061
     Dates: start: 20071120, end: 20071221
  15. PROSTAGLANDIN E2 [Concomitant]
     Indication: DERMATITIS
     Route: 061
     Dates: start: 20071221
  16. JUVELA N [Concomitant]
     Indication: DERMATITIS
     Route: 048
     Dates: start: 20071225
  17. METHADERM [Concomitant]
     Indication: DERMATITIS
     Route: 061
     Dates: start: 20071225
  18. HIRUDOID [Concomitant]
     Indication: DERMATITIS
     Route: 061
     Dates: start: 20071225

REACTIONS (1)
  - SMALL INTESTINE CARCINOMA [None]
